FAERS Safety Report 9510433 (Version 2)
Quarter: 2013Q3

REPORT INFORMATION
  Report Type: Spontaneous
  Country: US (occurrence: US)
  Receive Date: 20130909
  Receipt Date: 20130909
  Transmission Date: 20140515
  Serious: Yes (Other)
  Sender: FDA-Public Use
  Company Number: US-GENZYME-CERZ-1003131

PATIENT
  Age: 16 Year
  Sex: Male
  Weight: 51.25 kg

DRUGS (1)
  1. CEREZYME [Suspect]
     Indication: GAUCHER^S DISEASE
     Dosage: 54 U/KG, Q2W
     Route: 042
     Dates: start: 199807

REACTIONS (1)
  - Chitotriosidase increased [Not Recovered/Not Resolved]
